FAERS Safety Report 6046546-4 (Version None)
Quarter: 2009Q1

REPORT INFORMATION
  Report Type: 
  Country: None (occurrence: None)
  Receive Date: 20090122
  Receipt Date: 20090113
  Transmission Date: 20090719
  Serious: No
  Sender: FDA-Public Use
  Company Number: CA-ASTRAZENECA-2009UW01367

PATIENT
  Sex: Male

DRUGS (3)
  1. NEXIUM [Suspect]
     Indication: ULCER
     Route: 048
     Dates: start: 20080801
  2. BIAXIN [Concomitant]
  3. SUCRALFATE [Concomitant]

REACTIONS (2)
  - DYSPEPSIA [None]
  - HELICOBACTER GASTRITIS [None]
